FAERS Safety Report 25377210 (Version 4)
Quarter: 2025Q2

REPORT INFORMATION
  Report Type: Spontaneous
  Country: FR (occurrence: FR)
  Receive Date: 20250530
  Receipt Date: 20250626
  Transmission Date: 20250717
  Serious: Yes (Other)
  Sender: ABBVIE
  Company Number: FR-ASTELLAS-2025-AER-026461

PATIENT
  Age: 55 Year
  Sex: Male

DRUGS (2)
  1. ENANTONE LP [Suspect]
     Active Substance: LEUPROLIDE ACETATE
     Indication: Hormone-dependent prostate cancer
     Route: 058
     Dates: start: 2023
  2. XTANDI [Suspect]
     Active Substance: ENZALUTAMIDE
     Indication: Hormone-dependent prostate cancer
     Dosage: 40 MILLIGRAM, QID
     Route: 048
     Dates: start: 2023

REACTIONS (3)
  - Hypersensitivity [Not Recovered/Not Resolved]
  - Breast pain [Not Recovered/Not Resolved]
  - Gynaecomastia [Not Recovered/Not Resolved]
